FAERS Safety Report 16978725 (Version 1)
Quarter: 2019Q4

REPORT INFORMATION
  Report Type: Spontaneous
  Country: IT (occurrence: IT)
  Receive Date: 20191031
  Receipt Date: 20191031
  Transmission Date: 20200122
  Serious: Yes (Hospitalization)
  Sender: FDA-Public Use
  Company Number: IT-MYLANLABS-2019M1102731

PATIENT
  Age: 13 Year
  Sex: Male

DRUGS (8)
  1. RISPERIDONE. [Suspect]
     Active Substance: RISPERIDONE
     Indication: PSYCHOTIC DISORDER
     Route: 048
  2. RISPERIDONE. [Suspect]
     Active Substance: RISPERIDONE
     Indication: AGITATION
  3. PHENYTOIN. [Suspect]
     Active Substance: PHENYTOIN
     Indication: STATUS EPILEPTICUS
     Route: 040
  4. LEUCOVORIN                         /00566701/ [Concomitant]
     Active Substance: LEUCOVORIN
     Indication: SALVAGE THERAPY
     Route: 042
  5. METHOTREXATE. [Concomitant]
     Active Substance: METHOTREXATE
     Indication: OSTEOSARCOMA
     Dosage: 12G/M2
     Route: 065
  6. DOXORUBICIN [Concomitant]
     Active Substance: DOXORUBICIN
     Indication: OSTEOSARCOMA
     Route: 065
  7. LORAZEPAM. [Suspect]
     Active Substance: LORAZEPAM
     Indication: STATUS EPILEPTICUS
     Route: 040
  8. RISPERIDONE. [Suspect]
     Active Substance: RISPERIDONE
     Indication: DISINHIBITION

REACTIONS (2)
  - Off label use [Recovered/Resolved]
  - Drug ineffective [Recovered/Resolved]
